FAERS Safety Report 9553842 (Version 1)
Quarter: 2013Q3

REPORT INFORMATION
  Report Type: Spontaneous
  Country: US (occurrence: None)
  Receive Date: 20130924
  Receipt Date: 20130924
  Transmission Date: 20140515
  Serious: No
  Sender: FDA-Public Use
  Company Number: None

PATIENT
  Age: 54 Year
  Sex: Male
  Weight: 220 kg

DRUGS (5)
  1. CYCLOBENZAPRINE [Suspect]
     Route: 048
     Dates: start: 20130827, end: 20130914
  2. FUTEASONE [Concomitant]
  3. VITAMIN D [Concomitant]
  4. ASPIRIN [Concomitant]
  5. MULTI-VITAMIN [Concomitant]

REACTIONS (2)
  - Erectile dysfunction [None]
  - Erectile dysfunction [None]
